FAERS Safety Report 10692796 (Version 3)
Quarter: 2015Q2

REPORT INFORMATION
  Report Type: Report from Study
  Country: TR (occurrence: TR)
  Receive Date: 20150106
  Receipt Date: 20150427
  Transmission Date: 20150821
  Serious: Yes (Hospitalization)
  Sender: FDA-Public Use
  Company Number: TR-NOVOPROD-423610

PATIENT
  Age: 33 Year
  Sex: Female
  Weight: 65 kg

DRUGS (5)
  1. FERRO SANOL [Concomitant]
     Active Substance: FERROUS SULFATE\GLYCINE
     Indication: MINERAL SUPPLEMENTATION
     Dosage: 1X1
     Route: 048
     Dates: start: 201408
  2. NOVORAPID [Suspect]
     Active Substance: INSULIN ASPART
     Indication: GESTATIONAL DIABETES
     Dosage: 6 U, QD
     Route: 058
     Dates: start: 20140908, end: 20141119
  3. HUMULIN N [Concomitant]
     Active Substance: INSULIN HUMAN
     Indication: GESTATIONAL DIABETES
     Dosage: 4 U, QD
     Route: 058
     Dates: start: 20140908, end: 20141119
  4. DEAVIT [Concomitant]
     Indication: VITAMIN SUPPLEMENTATION
     Dosage: DAY 7 DROPS
     Route: 048
     Dates: start: 201408, end: 20141119
  5. DECAVIT                            /06014801/ [Concomitant]
     Indication: VITAMIN SUPPLEMENTATION
     Dosage: 1X1
     Route: 048
     Dates: start: 201408, end: 20141119

REACTIONS (3)
  - Blood glucose increased [Recovered/Resolved]
  - Vaginal haemorrhage [Recovered/Resolved]
  - Exposure during pregnancy [Recovered/Resolved]

NARRATIVE: CASE EVENT DATE: 20140908
